FAERS Safety Report 5132722-1 (Version None)
Quarter: 2006Q4

REPORT INFORMATION
  Report Type: 
  Country: None (occurrence: None)
  Receive Date: 20061023
  Receipt Date: 20060901
  Transmission Date: 20070319
  Serious: Yes (Other)
  Sender: FDA-Public Use
  Company Number: FR-GLAXOSMITHKLINE-B0439261A

PATIENT
  Age: 51 Year
  Sex: Female

DRUGS (5)
  1. DEROXAT [Suspect]
     Indication: DEPRESSION
     Dosage: 20MG PER DAY
     Route: 048
     Dates: start: 19950101, end: 19960101
  2. DEROXAT [Suspect]
     Dosage: 20MG PER DAY
     Route: 048
     Dates: start: 20060101, end: 20060101
  3. DEROXAT [Suspect]
     Dosage: 20MG PER DAY
     Route: 048
     Dates: start: 20060901, end: 20060901
  4. CORTISONE ACETATE [Concomitant]
     Indication: POLYARTHRITIS
  5. PLAQUENIL [Concomitant]
     Indication: POLYARTHRITIS

REACTIONS (5)
  - DRUG INEFFECTIVE [None]
  - IRRITABILITY [None]
  - SUICIDAL IDEATION [None]
  - THINKING ABNORMAL [None]
  - WEIGHT INCREASED [None]
